FAERS Safety Report 11430822 (Version 1)
Quarter: 2015Q3

REPORT INFORMATION
  Report Type: Spontaneous
  Country: US (occurrence: US)
  Receive Date: 20150828
  Receipt Date: 20150828
  Transmission Date: 20151125
  Serious: No
  Sender: FDA-Public Use
  Company Number: PHEH2014US017960

PATIENT
  Age: 71 Year
  Sex: Female

DRUGS (2)
  1. VIVELLE DOT [Suspect]
     Active Substance: ESTRADIOL
     Dosage: UNK UKN, ONCE WEEKLY
     Route: 062
     Dates: start: 201406
  2. VIVELLE DOT [Suspect]
     Active Substance: ESTRADIOL
     Indication: PRODUCT USED FOR UNKNOWN INDICATION
     Dosage: 0.025 MG, UNK
     Route: 062

REACTIONS (5)
  - Cerebral disorder [Unknown]
  - Inappropriate schedule of drug administration [Unknown]
  - Memory impairment [Unknown]
  - Thinking abnormal [Unknown]
  - Hot flush [Unknown]
